FAERS Safety Report 21615022 (Version 1)
Quarter: 2022Q4

REPORT INFORMATION
  Report Type: Spontaneous
  Country: US (occurrence: None)
  Receive Date: 20221118
  Receipt Date: 20221118
  Transmission Date: 20230113
  Serious: Yes (Other)
  Sender: FDA-Public Use
  Company Number: None

PATIENT
  Age: 46 Year
  Sex: Female
  Weight: 77.89 kg

DRUGS (9)
  1. VENOFER [Suspect]
     Active Substance: IRON SUCROSE
     Indication: Anaemia
     Dosage: OTHER QUANTITY : 300 300 MG?OTHER FREQUENCY : 1 TIME EVERY WEEK?
     Route: 042
     Dates: start: 20221110, end: 20221110
  2. ARMOUR THYROID [Concomitant]
     Active Substance: THYROID, PORCINE
  3. BUPROPION [Concomitant]
     Active Substance: BUPROPION
  4. AMBIEN [Concomitant]
     Active Substance: ZOLPIDEM TARTRATE
  5. ALPRAZOLAM [Concomitant]
     Active Substance: ALPRAZOLAM
  6. CITALOPRAM [Concomitant]
     Active Substance: CITALOPRAM HYDROBROMIDE
  7. Fexofenadine/sudephed [Concomitant]
  8. Bariatric fusion multivitamin [Concomitant]
  9. TYLENOL [Concomitant]
     Active Substance: ACETAMINOPHEN

REACTIONS (8)
  - Cough [None]
  - Orthostatic hypotension [None]
  - Dyspnoea [None]
  - Swelling [None]
  - Dizziness [None]
  - Tinnitus [None]
  - Headache [None]
  - Fatigue [None]

NARRATIVE: CASE EVENT DATE: 20221110
